FAERS Safety Report 7105731-0 (Version None)
Quarter: 2010Q4

REPORT INFORMATION
  Report Type: 
  Country: None (occurrence: None)
  Receive Date: 20101116
  Receipt Date: 20101108
  Transmission Date: 20110411
  Serious: Yes (Other)
  Sender: FDA-Public Use
  Company Number: PHHY2010GR76178

PATIENT
  Age: 32 Year
  Sex: Male

DRUGS (2)
  1. EXTAVIA [Suspect]
     Dosage: 0.25 ML
     Route: 058
     Dates: start: 20101026
  2. EXTAVIA [Suspect]
     Dosage: 0.50 ML
     Route: 058

REACTIONS (2)
  - CHILLS [None]
  - FEBRILE CONVULSION [None]
